FAERS Safety Report 20211160 (Version 1)
Quarter: 2021Q4

REPORT INFORMATION
  Report Type: Spontaneous
  Country: TN (occurrence: TN)
  Receive Date: 20211221
  Receipt Date: 20211221
  Transmission Date: 20220303
  Serious: Yes (Death, Hospitalization, Other)
  Sender: FDA-Public Use
  Company Number: TN-Accord-247823

PATIENT
  Age: 27 Year
  Sex: Female

DRUGS (1)
  1. METHOTREXATE [Suspect]
     Active Substance: METHOTREXATE
     Indication: Ectopic pregnancy
     Route: 030

REACTIONS (7)
  - Drug eruption [Unknown]
  - Pancytopenia [Unknown]
  - Hepatic cytolysis [Unknown]
  - Renal failure [Unknown]
  - Multiple organ dysfunction syndrome [Fatal]
  - Septic shock [Fatal]
  - Pneumonia [Unknown]
